FAERS Safety Report 6932156-0 (Version None)
Quarter: 2010Q3

REPORT INFORMATION
  Report Type: 
  Country: None (occurrence: None)
  Receive Date: 20100819
  Receipt Date: 20100811
  Transmission Date: 20110219
  Serious: Yes (Hospitalization)
  Sender: FDA-Public Use
  Company Number: B0662356A

PATIENT
  Sex: Male
  Weight: 52 kg

DRUGS (10)
  1. VALTREX [Suspect]
     Indication: HERPES ZOSTER
     Dosage: 3G PER DAY
     Route: 048
     Dates: start: 20100617, end: 20100620
  2. PREDONINE [Concomitant]
     Indication: HERPES ZOSTER
     Dosage: 15MG PER DAY
     Route: 048
     Dates: start: 20100617, end: 20100620
  3. GASTER [Concomitant]
     Dosage: 20MG PER DAY
     Route: 048
     Dates: end: 20100620
  4. LIVALO [Concomitant]
     Dosage: 2MG PER DAY
     Route: 048
     Dates: end: 20100620
  5. METFORMIN HCL [Concomitant]
     Indication: DIABETES MELLITUS
     Dosage: 500MG PER DAY
     Route: 048
  6. AMARYL [Concomitant]
     Indication: DIABETES MELLITUS
     Dosage: 6MG PER DAY
     Route: 048
  7. ADALAT CC [Concomitant]
     Indication: HYPERTENSION
     Dosage: 40MG PER DAY
     Route: 048
  8. UNKNOWN [Concomitant]
     Indication: DIABETES MELLITUS
     Dosage: 150MG PER DAY
     Route: 048
  9. PANALDINE [Concomitant]
     Indication: CEREBRAL INFARCTION
     Dosage: 100MG PER DAY
     Route: 048
  10. ASPIRIN [Concomitant]
     Indication: CEREBRAL INFARCTION
     Dosage: 100MG PER DAY
     Route: 048

REACTIONS (4)
  - ALTERED STATE OF CONSCIOUSNESS [None]
  - CELLULITIS [None]
  - RENAL FAILURE ACUTE [None]
  - RESTLESSNESS [None]
